FAERS Safety Report 6240851-4 (Version None)
Quarter: 2009Q2

REPORT INFORMATION
  Report Type: 
  Country: None (occurrence: None)
  Receive Date: 20090619
  Receipt Date: 20090605
  Transmission Date: 20091009
  Serious: Yes (Death)
  Sender: FDA-Public Use
  Company Number: KADN20090039

PATIENT
  Age: 18 Year
  Sex: Male

DRUGS (4)
  1. MORPHINE [Suspect]
     Dosage: INGESTION
     Dates: end: 20070101
  2. CHLORPHENIRAMINE [Suspect]
     Dosage: INGESTION
  3. DEXTROMETHORPHAN [Suspect]
     Dosage: INGESTION
     Dates: end: 20070101
  4. MYRISTICA FRAGRANS [Suspect]
     Dosage: INGESTION
     Dates: end: 20070101

REACTIONS (2)
  - DRUG TOXICITY [None]
  - PULMONARY CONGESTION [None]
